FAERS Safety Report 7544258-9 (Version None)
Quarter: 2011Q2

REPORT INFORMATION
  Report Type: 
  Country: None (occurrence: None)
  Receive Date: 20110613
  Receipt Date: 20070820
  Transmission Date: 20111010
  Serious: Yes (Hospitalization, Other)
  Sender: FDA-Public Use
  Company Number: PHFR2007GB02499

PATIENT
  Sex: Male

DRUGS (1)
  1. CLOZAPINE [Suspect]
     Indication: SCHIZOPHRENIA
     Dosage: 350 MG DAILY
     Route: 048
     Dates: start: 20020201

REACTIONS (5)
  - HYPOTENSION [None]
  - NAUSEA [None]
  - JAUNDICE [None]
  - CHOLELITHIASIS [None]
  - MUSCULAR WEAKNESS [None]
